FAERS Safety Report 6495736-5 (Version None)
Quarter: 2009Q4

REPORT INFORMATION
  Report Type: 
  Country: None (occurrence: None)
  Receive Date: 20091214
  Receipt Date: 20090814
  Transmission Date: 20100525
  Serious: Yes (Other)
  Sender: FDA-Public Use
  Company Number: US-BRISTOL-MYERS SQUIBB COMPANY-14731806

PATIENT
  Age: 15 Year
  Sex: Male

DRUGS (3)
  1. ABILIFY [Suspect]
     Indication: AGGRESSION
     Dosage: PLUS 5 MG P.M
     Route: 048
     Dates: start: 20061101
  2. ABILIFY [Suspect]
     Indication: MENTAL RETARDATION
     Dosage: PLUS 5 MG P.M
     Route: 048
     Dates: start: 20061101
  3. RISPERDAL [Suspect]
     Dates: start: 20090101

REACTIONS (1)
  - AGRANULOCYTOSIS [None]
